FAERS Safety Report 20170528 (Version 1)
Quarter: 2021Q4

REPORT INFORMATION
  Report Type: Spontaneous
  Country: DE (occurrence: DE)
  Receive Date: 20211210
  Receipt Date: 20211210
  Transmission Date: 20220303
  Serious: Yes (Other)
  Sender: FDA-Public Use
  Company Number: DE-LUPIN PHARMACEUTICALS INC.-2021-24172

PATIENT
  Age: 26 Year
  Sex: Male

DRUGS (1)
  1. QUININE [Suspect]
     Active Substance: QUININE
     Indication: Drug provocation test
     Dosage: 17 MG, QD
     Route: 048

REACTIONS (1)
  - Fixed eruption [Recovered/Resolved with Sequelae]
